FAERS Safety Report 5138995-3 (Version None)
Quarter: 2006Q4

REPORT INFORMATION
  Report Type: 
  Country: None (occurrence: None)
  Receive Date: 20061030
  Receipt Date: 20060601
  Transmission Date: 20070319
  Serious: No
  Sender: FDA-Public Use
  Company Number: US-GLAXOSMITHKLINE-A0607611A

PATIENT
  Age: 78 Year
  Sex: Male

DRUGS (9)
  1. ADVAIR HFA [Suspect]
     Indication: CHRONIC OBSTRUCTIVE PULMONARY DISEASE
     Route: 055
  2. COMBIVENT NEBULIZER [Concomitant]
  3. LISINOPRIL [Concomitant]
  4. PRAZOSIN HCL [Concomitant]
  5. ASPIRIN [Concomitant]
  6. MULTI-VITAMIN [Concomitant]
  7. ASCORBIC ACID [Concomitant]
  8. OXYGEN [Concomitant]
  9. GLUCOSAMINE [Concomitant]

REACTIONS (1)
  - DRUG INEFFECTIVE [None]
